FAERS Safety Report 7940992-7 (Version None)
Quarter: 2011Q4

REPORT INFORMATION
  Report Type: 
  Country: None (occurrence: None)
  Receive Date: 20111128
  Receipt Date: 20111118
  Transmission Date: 20120403
  Serious: Yes (Other)
  Sender: FDA-Public Use
  Company Number: FR-COVIDIEN/TYCO HEALTHCARE/MALLINCKRODT-T201102695

PATIENT
  Age: 32 Year
  Sex: Female

DRUGS (2)
  1. METHADOSE [Suspect]
     Dosage: MEAN DOSE 38 +/- 31 MG/DAY AT THE END OF PREGNANCY
  2. METHADOSE [Suspect]
     Indication: DRUG WITHDRAWAL MAINTENANCE THERAPY
     Dosage: MEAN DOSE 42 +/-32 MG/DAY AT BEGINNING OF PREGNANCY

REACTIONS (2)
  - STILLBIRTH [None]
  - MATERNAL EXPOSURE DURING PREGNANCY [None]
